FAERS Safety Report 4438649-2 (Version None)
Quarter: 2004Q3

REPORT INFORMATION
  Report Type: 
  Country: None (occurrence: None)
  Receive Date: 20040728
  Receipt Date: 20040226
  Transmission Date: 20050211
  Serious: No
  Sender: FDA-Public Use
  Company Number: USA040260342

PATIENT
  Age: 10 Year
  Sex: Male
  Weight: 35 kg

DRUGS (2)
  1. STRATTERA [Suspect]
     Dosage: 60 MG/1 DAY
     Dates: start: 20040101
  2. ADDERALL 10 [Concomitant]

REACTIONS (5)
  - ANGER [None]
  - DIARRHOEA [None]
  - MOOD SWINGS [None]
  - PRESCRIBED OVERDOSE [None]
  - STOMACH DISCOMFORT [None]
